FAERS Safety Report 24147224 (Version 1)
Quarter: 2024Q3

REPORT INFORMATION
  Report Type: Spontaneous
  Country: US (occurrence: None)
  Receive Date: 20240726
  Receipt Date: 20240726
  Transmission Date: 20241017
  Serious: Yes (Other)
  Sender: Public
  Company Number: None

PATIENT
  Age: 54 Year
  Sex: Male

DRUGS (1)
  1. XELSTRYM [Suspect]
     Active Substance: DEXTROAMPHETAMINE
     Indication: Attention deficit hyperactivity disorder
     Dosage: 13.5 MG DAILY TRANSDERMAL
     Route: 062
     Dates: start: 20240601, end: 20240726

REACTIONS (3)
  - Application site erythema [None]
  - Application site pruritus [None]
  - Application site swelling [None]

NARRATIVE: CASE EVENT DATE: 20240711
